FAERS Safety Report 7145095-X (Version None)
Quarter: 2010Q4

REPORT INFORMATION
  Report Type: 
  Country: None (occurrence: None)
  Receive Date: 20101208
  Receipt Date: 20101203
  Transmission Date: 20110411
  Serious: Yes (Death, Life-Threatening, Hospitalization, Other)
  Sender: FDA-Public Use
  Company Number: PHHY2009JP13580

PATIENT
  Sex: Male
  Weight: 72 kg

DRUGS (17)
  1. ICL670A ICL+DISTAB [Suspect]
     Indication: MYELOFIBROSIS
     Dosage: 1375 MG, QD
     Route: 048
     Dates: start: 20080904, end: 20090205
  2. ICL670A ICL+DISTAB [Suspect]
     Indication: IRON OVERLOAD
     Dosage: 1000 MG, QD
     Route: 048
     Dates: start: 20090206, end: 20090312
  3. PREDNISOLONE [Suspect]
     Indication: MYELOFIBROSIS
     Dosage: 10 MG, UNK
     Route: 048
     Dates: start: 20080904, end: 20090303
  4. PREDNISOLONE [Suspect]
     Dosage: 10 MG, DAILY
     Route: 048
     Dates: start: 20090305, end: 20090904
  5. ZOSYN [Suspect]
     Dosage: 13.5 G, DAILY
     Route: 042
     Dates: start: 20090526, end: 20090605
  6. MEROPENEM [Suspect]
     Dosage: 1 G, DAILY
     Route: 041
     Dates: start: 20090515, end: 20090525
  7. AMARYL [Concomitant]
     Indication: DIABETES MELLITUS
     Dosage: 0.5 MG, UNK
     Route: 048
     Dates: start: 20080904, end: 20090303
  8. AMARYL [Concomitant]
     Dosage: 1 MG, DAILY
     Route: 048
     Dates: start: 20090305, end: 20090904
  9. FOSAMAX [Concomitant]
     Indication: DIABETES MELLITUS
     Dosage: 35 MG, UNK
     Route: 048
     Dates: start: 20090304, end: 20090904
  10. FOSAMAX [Concomitant]
     Dosage: 35 MG, DAILY
     Route: 048
     Dates: start: 20090305, end: 20090904
  11. METFORMIN HCL [Concomitant]
     Indication: DIABETES MELLITUS
     Dosage: 500 MG, UNK
     Route: 048
     Dates: start: 20090304, end: 20090518
  12. METFORMIN HCL [Concomitant]
     Dosage: 500 MG, DAILY
     Route: 048
     Dates: start: 20090305, end: 20090518
  13. CEPHADOL [Concomitant]
     Indication: DIABETES MELLITUS
     Dosage: 75 MG, UNK
     Route: 048
     Dates: start: 20090304, end: 20090904
  14. CEPHADOL [Concomitant]
     Dosage: 75 MG, DAILY
     Route: 048
     Dates: start: 20090305, end: 20090904
  15. DESFERAL [Concomitant]
     Dosage: 1000 MG, UNK
     Route: 030
     Dates: start: 20071220, end: 20080821
  16. RED BLOOD CELLS, CONCENTRATED [Concomitant]
     Dosage: 2 U, QW
     Dates: start: 20080904, end: 20090304
  17. RED BLOOD CELLS, CONCENTRATED [Concomitant]
     Dosage: 2 U, QW
     Dates: start: 20090305, end: 20090904

REACTIONS (16)
  - ABSCESS JAW [None]
  - ALANINE AMINOTRANSFERASE INCREASED [None]
  - APHTHOUS STOMATITIS [None]
  - BLOOD CREATININE INCREASED [None]
  - BLOOD UREA INCREASED [None]
  - CELLULITIS [None]
  - DIARRHOEA [None]
  - MALAISE [None]
  - MALIGNANT NEOPLASM PROGRESSION [None]
  - NEUTROPHIL COUNT DECREASED [None]
  - PYREXIA [None]
  - RENAL IMPAIRMENT [None]
  - SEPSIS [None]
  - STOMATITIS [None]
  - SUBCUTANEOUS ABSCESS [None]
  - WHITE BLOOD CELL COUNT DECREASED [None]
